FAERS Safety Report 8273114-6 (Version None)
Quarter: 2012Q2

REPORT INFORMATION
  Report Type: 
  Country: None (occurrence: None)
  Receive Date: 20120411
  Receipt Date: 20120403
  Transmission Date: 20120825
  Serious: Yes (Other)
  Sender: FDA-Public Use
  Company Number: GB-JNJFOC-20120403309

PATIENT

DRUGS (36)
  1. DACARBAZINE [Suspect]
     Route: 042
  2. VINBLASTINE SULFATE [Suspect]
     Route: 042
  3. PROCARBAZINE HYDROCHLORIDE [Suspect]
     Route: 048
  4. PREDNISOLONE [Suspect]
     Route: 048
  5. DOXORUBICIN HCL [Suspect]
     Route: 042
  6. BLEOMYCIN SULFATE [Suspect]
     Route: 042
  7. BLEOMYCIN SULFATE [Suspect]
     Route: 042
  8. VINCRISTINE [Suspect]
     Indication: HODGKIN'S DISEASE
     Route: 042
  9. DACARBAZINE [Suspect]
     Route: 042
  10. CHLORAMBUCIL [Suspect]
     Route: 048
  11. CHLORAMBUCIL [Suspect]
     Indication: HODGKIN'S DISEASE
     Route: 048
  12. CHLORAMBUCIL [Suspect]
     Route: 048
  13. PROCARBAZINE HYDROCHLORIDE [Suspect]
     Indication: HODGKIN'S DISEASE
     Route: 048
  14. ETOPOSIDE [Suspect]
     Indication: HODGKIN'S DISEASE
     Route: 065
  15. CISPLATIN [Suspect]
     Indication: HODGKIN'S DISEASE
     Route: 065
  16. VINCRISTINE [Suspect]
     Route: 042
  17. VINBLASTINE SULFATE [Suspect]
     Indication: HODGKIN'S DISEASE
     Route: 042
  18. VINBLASTINE SULFATE [Suspect]
     Route: 042
  19. PROCARBAZINE HYDROCHLORIDE [Suspect]
     Route: 048
  20. PREDNISOLONE [Suspect]
     Indication: HODGKIN'S DISEASE
     Route: 048
  21. PREDNISOLONE [Suspect]
     Route: 048
  22. DOXORUBICIN HCL [Suspect]
     Indication: HODGKIN'S DISEASE
     Route: 042
  23. DACARBAZINE [Suspect]
     Indication: HODGKIN'S DISEASE
     Route: 042
  24. CHLORAMBUCIL [Suspect]
     Route: 048
  25. RADIOTHERAPY [Suspect]
     Indication: HODGKIN'S DISEASE
     Route: 065
  26. DOXORUBICIN HCL [Suspect]
     Route: 042
  27. BLEOMYCIN SULFATE [Suspect]
     Indication: HODGKIN'S DISEASE
     Route: 042
  28. DACARBAZINE [Suspect]
     Route: 042
  29. VINBLASTINE SULFATE [Suspect]
     Route: 042
  30. PROCARBAZINE HYDROCHLORIDE [Suspect]
     Route: 048
  31. DOXORUBICIN HCL [Suspect]
     Route: 042
  32. BLEOMYCIN SULFATE [Suspect]
     Route: 042
  33. VINCRISTINE [Suspect]
     Route: 042
  34. VINCRISTINE [Suspect]
     Route: 042
  35. PREDNISOLONE [Suspect]
     Route: 048
  36. IFOSFAMIDE [Suspect]
     Indication: HODGKIN'S DISEASE
     Route: 065

REACTIONS (1)
  - COLON CANCER [None]
